APPROVED DRUG PRODUCT: METHYLERGONOVINE MALEATE
Active Ingredient: METHYLERGONOVINE MALEATE
Strength: 0.2MG/ML
Dosage Form/Route: INJECTABLE;INJECTION
Application: A040889 | Product #001 | TE Code: AP
Applicant: BRECKENRIDGE PHARMACEUTICAL INC
Approved: Sep 13, 2010 | RLD: No | RS: No | Type: RX